FAERS Safety Report 8997429 (Version 1)
Quarter: 2013Q1

REPORT INFORMATION
  Report Type: Spontaneous
  Country: US (occurrence: US)
  Receive Date: 20130104
  Receipt Date: 20130104
  Transmission Date: 20140127
  Serious: No
  Sender: FDA-Public Use
  Company Number: US-PFIZER INC-2013002088

PATIENT
  Age: 66 Year
  Sex: Female
  Weight: 62.59 kg

DRUGS (3)
  1. PHENYTOIN SODIUM [Suspect]
     Indication: EPILEPSY
     Dosage: 100 MG, 2X/DAY
     Route: 048
  2. TRAMADOL [Concomitant]
     Dosage: UNK
  3. DILANTIN [Concomitant]
     Dosage: UNK

REACTIONS (2)
  - Disorientation [Unknown]
  - Feeling abnormal [Unknown]
